FAERS Safety Report 8427802-9 (Version None)
Quarter: 2012Q2

REPORT INFORMATION
  Report Type: 
  Country: None (occurrence: None)
  Receive Date: 20120611
  Receipt Date: 20120605
  Transmission Date: 20120825
  Serious: Yes (Other)
  Sender: FDA-Public Use
  Company Number: JP-PFIZER INC-2012128205

PATIENT
  Age: 51 Year
  Sex: Male

DRUGS (1)
  1. CELEBREX [Suspect]
     Dosage: UNK
     Route: 048
     Dates: start: 20120523, end: 20120524

REACTIONS (2)
  - GENERALISED OEDEMA [None]
  - URINARY RETENTION [None]
